FAERS Safety Report 17694548 (Version 1)
Quarter: 2020Q2

REPORT INFORMATION
  Report Type: Spontaneous
  Country: AU (occurrence: AU)
  Receive Date: 20200422
  Receipt Date: 20200422
  Transmission Date: 20200714
  Serious: Yes (Life-Threatening, Hospitalization, Other)
  Sender: FDA-Public Use
  Company Number: AU-TASMAN PHARMA, INC.-2020TSM00097

PATIENT
  Age: 59 Year
  Sex: Female
  Weight: 75 kg

DRUGS (12)
  1. ASCORBIC ACID. [Concomitant]
     Active Substance: ASCORBIC ACID
     Dosage: 500 MG, 1X/DAY AT NIGHT
  2. ATORVASTATIN [Concomitant]
     Active Substance: ATORVASTATIN
     Dosage: 10 MG, 1X/DAY AT NIGHT
  3. CLOZAPINE. [Suspect]
     Active Substance: CLOZAPINE
     Indication: SCHIZOPHRENIA
     Dosage: 100 MG
     Route: 048
     Dates: start: 20200218, end: 20200223
  4. CLOZAPINE. [Suspect]
     Active Substance: CLOZAPINE
     Dosage: 225 MG IN SPLIT DOSES
     Route: 048
     Dates: start: 202002, end: 20200227
  5. TRELEGY ELLIPTA [Concomitant]
     Active Substance: FLUTICASONE FUROATE\UMECLIDINIUM BROMIDE\VILANTEROL TRIFENATATE
     Dosage: 1 PUFF, 1X/DAY
  6. MIRTAZAPINE. [Concomitant]
     Active Substance: MIRTAZAPINE
     Dosage: 30 MG, 1X/DAY AT NIGHT
  7. VENLAFAXINE [Concomitant]
     Active Substance: VENLAFAXINE HYDROCHLORIDE
     Dosage: 75 MG, 1X/DAY
  8. DIAZEPAM. [Concomitant]
     Active Substance: DIAZEPAM
     Dosage: 5 MG, 2X/DAY
  9. LURASIDONE [Concomitant]
     Active Substance: LURASIDONE
     Dosage: 40 MG, 1X/DAY AT NIGHT
  10. ZOPICLONE [Concomitant]
     Active Substance: ZOPICLONE
     Dosage: 75 MG, 1X/DAY AT NIGHT
  11. CLOZAPINE. [Suspect]
     Active Substance: CLOZAPINE
     Indication: SCHIZOPHRENIA
     Dosage: 200 MG
     Route: 048
     Dates: start: 20200224, end: 20200227
  12. FERROUS SULFATE. [Concomitant]
     Active Substance: FERROUS SULFATE
     Dosage: 325 MG, 1X/DAY AT NIGHT

REACTIONS (9)
  - Chronic obstructive pulmonary disease [Recovered/Resolved]
  - C-reactive protein increased [Recovered/Resolved]
  - Troponin increased [Recovered/Resolved]
  - Tachycardia [Recovered/Resolved]
  - Myocarditis [Recovered/Resolved]
  - Dyspnoea [Recovered/Resolved]
  - Pyrexia [Recovered/Resolved]
  - Prohormone brain natriuretic peptide increased [Recovered/Resolved]
  - Chest pain [Recovered/Resolved]

NARRATIVE: CASE EVENT DATE: 202002
